FAERS Safety Report 6892547-3 (Version None)
Quarter: 2010Q3

REPORT INFORMATION
  Report Type: 
  Country: None (occurrence: None)
  Receive Date: 20100731
  Receipt Date: 20080623
  Transmission Date: 20110219
  Serious: Yes (Other)
  Sender: FDA-Public Use
  Company Number: US-PFIZER INC-2008052633

PATIENT
  Sex: Female
  Weight: 58.181 kg

DRUGS (7)
  1. NORVASC [Suspect]
     Indication: HYPERTENSION
     Dosage: EVERY DAY
     Dates: start: 20080501, end: 20080620
  2. LIPITOR [Concomitant]
  3. PROVERA [Concomitant]
  4. ESTRADIOL [Concomitant]
  5. CALCIUM [Concomitant]
  6. FISH OIL [Concomitant]
  7. MULTI-VITAMINS [Concomitant]

REACTIONS (4)
  - ABDOMINAL DISTENSION [None]
  - LIMB INJURY [None]
  - OEDEMA PERIPHERAL [None]
  - RHINORRHOEA [None]
